FAERS Safety Report 5604604-X (Version None)
Quarter: 2008Q1

REPORT INFORMATION
  Report Type: 
  Country: None (occurrence: None)
  Receive Date: 20080128
  Receipt Date: 20080121
  Transmission Date: 20080703
  Serious: Yes (Hospitalization)
  Sender: FDA-Public Use
  Company Number: FR-ASTRAZENECA-2008CG00073

PATIENT
  Age: 31178 Day
  Sex: Female

DRUGS (16)
  1. NEXIUM [Suspect]
     Route: 048
     Dates: start: 20071003, end: 20071124
  2. NEXIUM [Suspect]
     Route: 048
     Dates: start: 20071126
  3. PREVISCAN [Suspect]
     Route: 048
     Dates: start: 20071105, end: 20071119
  4. PREVISCAN [Suspect]
     Route: 048
     Dates: start: 20071126
  5. AMLOR [Concomitant]
  6. PLAVIX [Concomitant]
  7. LASIX [Concomitant]
  8. KARDEGIC [Concomitant]
     Dates: end: 20071128
  9. CALCIDIA [Concomitant]
  10. ATARAX [Concomitant]
     Dates: end: 20071119
  11. ATARAX [Concomitant]
     Dates: start: 20071128
  12. CETIRIZINE HCL [Concomitant]
     Dates: end: 20071120
  13. CETIRIZINE HCL [Concomitant]
     Dates: start: 20071128
  14. CORDARONE [Concomitant]
  15. DIFFU-K [Concomitant]
     Dates: end: 20071128
  16. ESIDRIX [Concomitant]

REACTIONS (1)
  - TOXIC SKIN ERUPTION [None]
